FAERS Safety Report 5794009-3 (Version None)
Quarter: 2008Q2

REPORT INFORMATION
  Report Type: 
  Country: None (occurrence: None)
  Receive Date: 20080627
  Receipt Date: 20080617
  Transmission Date: 20081010
  Serious: Yes (Other)
  Sender: FDA-Public Use
  Company Number: US-PFIZER INC-2008050819

PATIENT

DRUGS (3)
  1. LYRICA [Suspect]
     Dosage: DAILY DOSE:25MG
  2. ACTOS [Interacting]
     Indication: DIABETES MELLITUS
  3. CALCIUM CHANNEL BLOCKERS [Interacting]

REACTIONS (7)
  - CARDIAC FAILURE [None]
  - DIABETES MELLITUS [None]
  - DRUG INTERACTION [None]
  - LIVER DISORDER [None]
  - OEDEMA [None]
  - OEDEMA PERIPHERAL [None]
  - RENAL IMPAIRMENT [None]
